FAERS Safety Report 7595063-9 (Version None)
Quarter: 2011Q3

REPORT INFORMATION
  Report Type: 
  Country: None (occurrence: None)
  Receive Date: 20110707
  Receipt Date: 20110624
  Transmission Date: 20111222
  Serious: Yes (Hospitalization)
  Sender: FDA-Public Use
  Company Number: US-CELGENEUS-163-21880-11063314

PATIENT
  Sex: Male

DRUGS (13)
  1. REVLIMID [Suspect]
     Dosage: 25 MILLIGRAM
     Route: 048
  2. METOPROLOL TARTRATE [Concomitant]
     Dosage: 50 MILLIGRAM
     Route: 048
  3. TYLENOL-500 [Concomitant]
     Dosage: 650 MILLIGRAM
     Route: 048
  4. GLIPIZIDE [Concomitant]
     Dosage: 5 MILLIGRAM
     Route: 048
  5. AMBIEN [Concomitant]
     Dosage: 10 MILLIGRAM
     Route: 048
  6. VIDAZA [Suspect]
     Route: 065
  7. VALTREX [Concomitant]
     Dosage: 500 MILLIGRAM
     Route: 048
  8. METFORMIN HCL [Concomitant]
     Dosage: 500MG QAM AND 1000MG QPM
     Route: 048
  9. LIPITOR [Concomitant]
     Dosage: 80 MILLIGRAM
     Route: 048
  10. EFFEXOR XR [Concomitant]
     Dosage: 37.5 MILLIGRAM
     Route: 048
  11. LEVOTHYROXINE SODIUM [Concomitant]
     Dosage: 150 MICROGRAM
     Route: 048
  12. LISINOPRIL AND HYDROCHLOROTHIAZIDE [Concomitant]
     Dosage: 20-12.5MG
     Route: 048
  13. PLATELETS [Concomitant]
     Indication: THROMBOCYTOPENIA
     Route: 051
     Dates: start: 20110601, end: 20110601

REACTIONS (1)
  - OEDEMA PERIPHERAL [None]
